FAERS Safety Report 7331881-X (Version None)
Quarter: 2011Q1

REPORT INFORMATION
  Report Type: 
  Country: None (occurrence: None)
  Receive Date: 20110304
  Receipt Date: 20100105
  Transmission Date: 20110831
  Serious: No
  Sender: FDA-Public Use
  Company Number: US-PFIZER INC-2009301270

PATIENT
  Sex: Female
  Weight: 74.8 kg

DRUGS (4)
  1. CORTAID [Concomitant]
     Indication: BLOOD CORTISOL
     Dosage: UNK
  2. VALIUM [Concomitant]
     Dosage: 5 MG, UNK
  3. ESTROGENS [Concomitant]
     Dosage: UNK
  4. DILANTIN [Suspect]
     Indication: CONVULSION
     Dosage: 200 MG, 2X/DAY
     Route: 048
     Dates: start: 19690101

REACTIONS (6)
  - PRURITUS [None]
  - ANTICONVULSANT DRUG LEVEL INCREASED [None]
  - BLOOD CHOLESTEROL INCREASED [None]
  - DIZZINESS [None]
  - MOOD ALTERED [None]
  - DEPRESSION [None]
